FAERS Safety Report 6932227-9 (Version None)
Quarter: 2010Q3

REPORT INFORMATION
  Report Type: 
  Country: None (occurrence: None)
  Receive Date: 20100819
  Receipt Date: 20100809
  Transmission Date: 20110219
  Serious: Yes (Death)
  Sender: FDA-Public Use
  Company Number: US-ROCHE-707473

PATIENT
  Sex: Female
  Weight: 72.6 kg

DRUGS (1)
  1. CAPECITABINE [Suspect]
     Indication: COLORECTAL CANCER
     Dosage: 500 MG TABLETS THRICE DAILY AND 150 MG TABLETS TWICE DAILY
     Route: 048
     Dates: start: 20100330, end: 20100526

REACTIONS (1)
  - MALIGNANT NEOPLASM PROGRESSION [None]
